FAERS Safety Report 5652589-2 (Version None)
Quarter: 2008Q1

REPORT INFORMATION
  Report Type: 
  Country: None (occurrence: None)
  Receive Date: 20080306
  Receipt Date: 20080225
  Transmission Date: 20080703
  Serious: Yes (Other)
  Sender: FDA-Public Use
  Company Number: US-JNJFOC-20080206639

PATIENT
  Sex: Female

DRUGS (1)
  1. REMICADE [Suspect]
     Indication: DRUG USE FOR UNKNOWN INDICATION
     Route: 042

REACTIONS (9)
  - ARTHRITIS [None]
  - DRUG HYPERSENSITIVITY [None]
  - HYPOAESTHESIA [None]
  - INJECTION SITE BRUISING [None]
  - MUSCULOSKELETAL STIFFNESS [None]
  - PARAESTHESIA [None]
  - PYREXIA [None]
  - SWELLING [None]
  - TRISMUS [None]
